FAERS Safety Report 20732634 (Version 2)
Quarter: 2022Q2

REPORT INFORMATION
  Report Type: Report from Study
  Country: US (occurrence: US)
  Receive Date: 20220420
  Receipt Date: 20220505
  Transmission Date: 20220720
  Serious: Yes (Death, Hospitalization, Other)
  Sender: FDA-Public Use
  Company Number: US-TAKEDA-2022TUS025626

PATIENT
  Sex: Male

DRUGS (8)
  1. TEDUGLUTIDE [Suspect]
     Active Substance: TEDUGLUTIDE
     Indication: Intestinal infarction
     Dosage: 4.08 MILLIGRAM, QD
     Route: 058
     Dates: start: 202202
  2. TEDUGLUTIDE [Suspect]
     Active Substance: TEDUGLUTIDE
     Indication: Intestinal infarction
     Dosage: 4.08 MILLIGRAM, QD
     Route: 058
     Dates: start: 202202
  3. TEDUGLUTIDE [Suspect]
     Active Substance: TEDUGLUTIDE
     Indication: Intestinal infarction
     Dosage: 4.08 MILLIGRAM, QD
     Route: 058
     Dates: start: 202202
  4. TEDUGLUTIDE [Suspect]
     Active Substance: TEDUGLUTIDE
     Indication: Intestinal infarction
     Dosage: 4.08 MILLIGRAM, QD
     Route: 058
     Dates: start: 202202
  5. TEDUGLUTIDE [Suspect]
     Active Substance: TEDUGLUTIDE
     Dosage: 4.08 UNK
     Route: 058
     Dates: start: 20220209
  6. TEDUGLUTIDE [Suspect]
     Active Substance: TEDUGLUTIDE
     Dosage: 4.08 UNK
     Route: 058
     Dates: start: 20220209
  7. TEDUGLUTIDE [Suspect]
     Active Substance: TEDUGLUTIDE
     Dosage: 4.08 UNK
     Route: 058
     Dates: start: 20220209
  8. TEDUGLUTIDE [Suspect]
     Active Substance: TEDUGLUTIDE
     Dosage: 4.08 UNK
     Route: 058
     Dates: start: 20220209

REACTIONS (4)
  - Infection [Fatal]
  - Multiple organ dysfunction syndrome [Fatal]
  - Hospitalisation [Unknown]
  - Off label use [Unknown]
